FAERS Safety Report 5406199-2 (Version None)
Quarter: 2007Q3

REPORT INFORMATION
  Report Type: 
  Country: None (occurrence: None)
  Receive Date: 20070806
  Receipt Date: 20070803
  Transmission Date: 20080115
  Serious: Yes (Hospitalization)
  Sender: FDA-Public Use
  Company Number: FR-ASTRAZENECA-2007CG01146

PATIENT
  Age: 50 Year
  Sex: Female

DRUGS (5)
  1. NEXIUM [Suspect]
     Indication: HELICOBACTER INFECTION
     Route: 048
     Dates: start: 20070701, end: 20070803
  2. AMOXICILLIN [Concomitant]
     Indication: HELICOBACTER INFECTION
     Dates: start: 20070701, end: 20070701
  3. ZECLAR [Concomitant]
     Indication: HELICOBACTER INFECTION
     Dates: start: 20070701, end: 20070701
  4. PREVISCAN [Concomitant]
     Indication: PULMONARY EMBOLISM
     Dates: start: 20070723
  5. HEPARIN [Concomitant]
     Indication: PULMONARY EMBOLISM
     Dates: start: 20070723

REACTIONS (3)
  - CHOLESTASIS [None]
  - CYTOLYTIC HEPATITIS [None]
  - JAUNDICE [None]
